FAERS Safety Report 10025740 (Version 1)
Quarter: 2014Q1

REPORT INFORMATION
  Report Type: Spontaneous
  Country: US (occurrence: US)
  Receive Date: 20140320
  Receipt Date: 20140320
  Transmission Date: 20141002
  Serious: No
  Sender: FDA-Public Use
  Company Number: US-BAXTER-2014BAX011133

PATIENT
  Sex: 0

DRUGS (1)
  1. TRAVASOL? (AMINO ACID) INJECTIONS [Suspect]
     Indication: PRODUCT USED FOR UNKNOWN INDICATION
     Route: 065

REACTIONS (3)
  - Product colour issue [Recovered/Resolved]
  - Poor quality drug administered [Recovered/Resolved]
  - No adverse event [Recovered/Resolved]
